FAERS Safety Report 8816462 (Version 1)
Quarter: 2012Q4

REPORT INFORMATION
  Report Type: Spontaneous
  Country: US (occurrence: None)
  Receive Date: 20120927
  Receipt Date: 20120927
  Transmission Date: 20130627
  Serious: No
  Sender: FDA-Public Use
  Company Number: B0833104A

PATIENT

DRUGS (3)
  1. PHENOXYBENZAMINE HYDROCHLORIDE [Suspect]
     Indication: PHAEOCHROMOCYTOMA
     Route: 064
  2. PROPRANOLOL HYDROCHLORIDE [Suspect]
  3. MAGNESIUM SULFATE [Suspect]

REACTIONS (3)
  - Caesarean section [None]
  - Premature baby [None]
  - Maternal drugs affecting foetus [None]
